FAERS Safety Report 17588124 (Version 1)
Quarter: 2020Q1

REPORT INFORMATION
  Report Type: Spontaneous
  Country: US (occurrence: US)
  Receive Date: 20200327
  Receipt Date: 20200327
  Transmission Date: 20200409
  Serious: Yes (Hospitalization, Other)
  Sender: FDA-Public Use
  Company Number: US-ELI_LILLY_AND_COMPANY-US202003009110

PATIENT
  Sex: Male

DRUGS (3)
  1. CISPLATIN. [Concomitant]
     Active Substance: CISPLATIN
     Indication: PLEURAL MESOTHELIOMA MALIGNANT
     Dosage: 75 MG/M2, UNKNOWN
  2. PEMETREXED. [Suspect]
     Active Substance: PEMETREXED
     Indication: PLEURAL MESOTHELIOMA MALIGNANT
     Dosage: 500 MG/M2, CYCLICAL
     Route: 065
  3. INF A [Suspect]
     Active Substance: INTERFERON ALFA-2A
     Indication: PLEURAL MESOTHELIOMA MALIGNANT
     Dosage: UNK, UNKNOWN
     Route: 034

REACTIONS (16)
  - Weight decreased [Recovered/Resolved]
  - Radiation oesophagitis [Recovered/Resolved]
  - Dyspnoea [Unknown]
  - Septic shock [Recovered/Resolved]
  - Pneumonia [Recovered/Resolved]
  - Productive cough [Recovered/Resolved]
  - Pneumonitis [Recovered/Resolved]
  - Cough [Unknown]
  - Oedema peripheral [Unknown]
  - Dyspnoea exertional [Recovered/Resolved]
  - Anaemia [Unknown]
  - Orthopnoea [Unknown]
  - Infection [Recovered/Resolved]
  - Malignant neoplasm progression [Unknown]
  - Radiation pneumonitis [Recovered/Resolved]
  - Fatigue [Unknown]
